FAERS Safety Report 13423837 (Version 6)
Quarter: 2017Q3

REPORT INFORMATION
  Report Type: Spontaneous
  Country: TW (occurrence: TW)
  Receive Date: 20170410
  Receipt Date: 20170818
  Transmission Date: 20171127
  Serious: Yes (Hospitalization, Other)
  Sender: FDA-Public Use
  Company Number: TW-PFIZER INC-2017151991

PATIENT
  Age: 71 Year
  Sex: Female

DRUGS (8)
  1. XELJANZ [Suspect]
     Active Substance: TOFACITINIB CITRATE
     Dosage: 5 MG, 1X/DAY
     Route: 048
     Dates: start: 20170405, end: 20170502
  2. FOLIC ACID. [Concomitant]
     Active Substance: FOLIC ACID
     Indication: RHEUMATOID ARTHRITIS
     Dosage: 1 DF, QD
     Route: 048
  3. GLUCOMET /00082702/ [Concomitant]
     Indication: DIABETES MELLITUS
     Dosage: 1 DF, QD
     Route: 048
  4. METHOTREXATE (METHOTREXATE SODIUM) [Concomitant]
     Active Substance: METHOTREXATE SODIUM
     Indication: RHEUMATOID ARTHRITIS
     Dosage: 4 DF, WEEKLY
     Route: 048
  5. XELJANZ [Suspect]
     Active Substance: TOFACITINIB CITRATE
     Indication: RHEUMATOID ARTHRITIS
     Dosage: 5 MG, BID
     Route: 048
     Dates: start: 20160504, end: 20170404
  6. XELJANZ [Suspect]
     Active Substance: TOFACITINIB CITRATE
     Dosage: 5 MG, BID
     Route: 048
     Dates: start: 20170503
  7. COVAXIN [Concomitant]
     Indication: OSTEOPOROSIS
     Dosage: 1 DF, WEEKLY
     Route: 048
  8. SUPLAX [Concomitant]
     Indication: PAIN
     Dosage: 1 DF, QD

REACTIONS (4)
  - Patella fracture [Recovering/Resolving]
  - Fall [Unknown]
  - Contusion [Recovering/Resolving]
  - Oedema peripheral [Not Recovered/Not Resolved]

NARRATIVE: CASE EVENT DATE: 2017
